FAERS Safety Report 6147634-4 (Version None)
Quarter: 2009Q2

REPORT INFORMATION
  Report Type: 
  Country: None (occurrence: None)
  Receive Date: 20090408
  Receipt Date: 20081105
  Transmission Date: 20091009
  Serious: Yes (Death)
  Sender: FDA-Public Use
  Company Number: PH-PFIZER INC-2008094182

PATIENT

DRUGS (1)
  1. NORVASC [Suspect]

REACTIONS (1)
  - CARDIAC DISORDER [None]
